FAERS Safety Report 17839032 (Version 1)
Quarter: 2020Q2

REPORT INFORMATION
  Report Type: Spontaneous
  Country: CH (occurrence: CH)
  Receive Date: 20200529
  Receipt Date: 20200529
  Transmission Date: 20200714
  Serious: Yes (Death, Other)
  Sender: FDA-Public Use
  Company Number: CH-009507513-2005CHE008371

PATIENT
  Age: 70 Year
  Sex: Male
  Weight: 106 kg

DRUGS (6)
  1. JANUVIA [Suspect]
     Active Substance: SITAGLIPTIN PHOSPHATE
     Dosage: 50 MILLIGRAM, ONCE DAILY
     Route: 048
     Dates: start: 201810, end: 20200119
  2. METFORMIN [Suspect]
     Active Substance: METFORMIN HYDROCHLORIDE
     Dosage: 1000 MILLIGRAM, Q12H (ALSO REPORTED AS TWICE DAILY)
     Route: 048
     Dates: start: 201401, end: 20200119
  3. CONDROSULF [Suspect]
     Active Substance: SODIUM CHONDROITIN SULFATE
     Dosage: 800 MILLIGRAM, ONCE DAILY
     Route: 048
     Dates: start: 2010, end: 20200119
  4. DEXILANT [Suspect]
     Active Substance: DEXLANSOPRAZOLE
     Dosage: 30 MILLIGRAM, Q12H (ALSO REPROTED AS TWICE DAILY); OTHERWISE, NEXIUM (ESOMEPRAZOLE, SINCE 2010)
     Route: 048
     Dates: start: 201910, end: 20200119
  5. PERINDOPRIL [Suspect]
     Active Substance: PERINDOPRIL
     Dosage: 4 MILLIGRAM, ONCE DAILY
     Route: 048
     Dates: start: 201904, end: 20200119
  6. ATORVASTATIN CALCIUM. [Suspect]
     Active Substance: ATORVASTATIN CALCIUM
     Dosage: 10 MILLIGRAM, ONCE DAILY
     Route: 048
     Dates: start: 201407, end: 20200119

REACTIONS (1)
  - Pancreatitis necrotising [Fatal]

NARRATIVE: CASE EVENT DATE: 20200119
